FAERS Safety Report 7464050-3 (Version None)
Quarter: 2011Q2

REPORT INFORMATION
  Report Type: 
  Country: None (occurrence: None)
  Receive Date: 20110506
  Receipt Date: 20110427
  Transmission Date: 20111010
  Serious: Yes (Other)
  Sender: FDA-Public Use
  Company Number: US-BAYER-2011-036648

PATIENT
  Age: 64 Year
  Sex: Female

DRUGS (7)
  1. VITAMIN B-12 [Concomitant]
  2. FINGOLIMOD HYDROCHLORIDE [Concomitant]
  3. NIACIN [Concomitant]
  4. AGGRENOX [Concomitant]
  5. AVELOX [Suspect]
     Indication: SINUSITIS
     Dosage: 400 MG, UNK
     Route: 048
     Dates: start: 20110426, end: 20110426
  6. SEPTRA DS [Concomitant]
  7. ATIVAN [Concomitant]

REACTIONS (6)
  - LACRIMATION INCREASED [None]
  - ERYTHEMA [None]
  - SWOLLEN TONGUE [None]
  - PRURITUS [None]
  - ANAPHYLACTIC REACTION [None]
  - PAIN IN EXTREMITY [None]
